FAERS Safety Report 16671908 (Version 3)
Quarter: 2019Q3

REPORT INFORMATION
  Report Type: Spontaneous
  Country: MY (occurrence: MY)
  Receive Date: 20190806
  Receipt Date: 20190904
  Transmission Date: 20191004
  Serious: Yes (Life-Threatening, Hospitalization, Other)
  Sender: FDA-Public Use
  Company Number: MY-ACCORD-150137

PATIENT
  Age: 72 Year
  Sex: Male
  Weight: 58 kg

DRUGS (2)
  1. VINORELBINE [Suspect]
     Active Substance: VINORELBINE TARTRATE
     Indication: NON-SMALL CELL LUNG CANCER STAGE II
     Dosage: ON DAY 1 AND DAY 8
     Route: 042
  2. CISPLATIN. [Suspect]
     Active Substance: CISPLATIN
     Indication: NON-SMALL CELL LUNG CANCER STAGE II
     Dosage: ON DAY 1
     Route: 042

REACTIONS (3)
  - Metastases to lung [Not Recovered/Not Resolved]
  - Adenosquamous cell lung cancer recurrent [Not Recovered/Not Resolved]
  - Sarcoma [Not Recovered/Not Resolved]
